FAERS Safety Report 4521739-3 (Version None)
Quarter: 2004Q4

REPORT INFORMATION
  Report Type: 
  Country: None (occurrence: None)
  Receive Date: 20041209
  Receipt Date: 20041206
  Transmission Date: 20050328
  Serious: Yes (Other)
  Sender: FDA-Public Use
  Company Number: US-BRISTOL-MYERS SQUIBB COMPANY-12786372

PATIENT
  Sex: Female

DRUGS (1)
  1. SERZONE [Suspect]

REACTIONS (1)
  - HEPATIC STEATOSIS [None]
